FAERS Safety Report 24067903 (Version 1)
Quarter: 2024Q3

REPORT INFORMATION
  Report Type: Spontaneous
  Country: US (occurrence: US)
  Receive Date: 20240710
  Receipt Date: 20240710
  Transmission Date: 20241017
  Serious: No
  Sender: GLAUKOS
  Company Number: US-GLK-002351

PATIENT
  Sex: Female

DRUGS (2)
  1. PHOTREXA VISCOUS [Suspect]
     Active Substance: RIBOFLAVIN 5^-PHOSPHATE SODIUM
     Route: 047
     Dates: start: 20240522, end: 20240522
  2. PHOTREXA [Suspect]
     Active Substance: RIBOFLAVIN 5^-PHOSPHATE SODIUM
     Indication: Product used for unknown indication
     Route: 047
     Dates: start: 20240522, end: 20240522

REACTIONS (2)
  - Eye infection [Unknown]
  - Corneal epithelium defect [Recovering/Resolving]
